FAERS Safety Report 12904052 (Version 3)
Quarter: 2017Q1

REPORT INFORMATION
  Report Type: Spontaneous
  Country: JP (occurrence: JP)
  Receive Date: 20161102
  Receipt Date: 20170127
  Transmission Date: 20170428
  Serious: Yes (Life-Threatening, Other)
  Sender: FDA-Public Use
  Company Number: JP-UCBSA-2016040626

PATIENT
  Age: 54 Year
  Sex: Male

DRUGS (6)
  1. LORAZEPAM. [Concomitant]
     Active Substance: LORAZEPAM
     Indication: PRODUCT USED FOR UNKNOWN INDICATION
     Dosage: UNK
     Route: 048
     Dates: start: 20100612
  2. E KEPPRA [Suspect]
     Active Substance: LEVETIRACETAM
     Indication: PROPHYLAXIS
     Dosage: 500 MG DAILY
     Route: 041
     Dates: start: 20160916, end: 20161004
  3. TRIAZOLAM. [Concomitant]
     Active Substance: TRIAZOLAM
     Indication: PRODUCT USED FOR UNKNOWN INDICATION
     Dosage: UNK
     Route: 048
     Dates: start: 20100612
  4. LIMAS [Suspect]
     Active Substance: LITHIUM CARBONATE
     Indication: PRODUCT USED FOR UNKNOWN INDICATION
     Dosage: 1000MG DAILY
     Route: 048
     Dates: start: 20100612, end: 20160915
  5. E KEPPRA [Suspect]
     Active Substance: LEVETIRACETAM
     Indication: OFF LABEL USE
  6. FLUNITRAZEPAM [Concomitant]
     Active Substance: FLUNITRAZEPAM
     Indication: PRODUCT USED FOR UNKNOWN INDICATION
     Dosage: UNK
     Route: 048
     Dates: start: 20100612

REACTIONS (2)
  - Neuroleptic malignant syndrome [Recovering/Resolving]
  - Off label use [Unknown]

NARRATIVE: CASE EVENT DATE: 20160916
